FAERS Safety Report 6368358-4 (Version None)
Quarter: 2009Q3

REPORT INFORMATION
  Report Type: 
  Country: None (occurrence: None)
  Receive Date: 20090922
  Receipt Date: 20090911
  Transmission Date: 20100115
  Serious: No
  Sender: FDA-Public Use
  Company Number: US-B.I. PHARMACEUTICALS,INC./RIDGEFIELD-2009-BP-10072BP

PATIENT
  Sex: Female

DRUGS (9)
  1. SPIRIVA [Suspect]
     Indication: CHRONIC OBSTRUCTIVE PULMONARY DISEASE
     Dosage: 18 MCG
  2. ADVAIR HFA [Concomitant]
  3. THEOPHYLLINE [Concomitant]
  4. PREDNISONE [Concomitant]
  5. NEXIUM [Concomitant]
     Dosage: 40 MG
  6. HYDROCODONE BITARTRATE AND ACETAMINOPHEN [Concomitant]
  7. LORAZEPAM [Concomitant]
     Dosage: 8 MG
  8. IBUPROFEN [Concomitant]
  9. ALBUTEROL [Concomitant]

REACTIONS (1)
  - SPINAL FRACTURE [None]
